FAERS Safety Report 8170769-1 (Version None)
Quarter: 2012Q1

REPORT INFORMATION
  Report Type: 
  Country: None (occurrence: None)
  Receive Date: 20120228
  Receipt Date: 20120222
  Transmission Date: 20120608
  Serious: Yes (Other)
  Sender: FDA-Public Use
  Company Number: US-PFIZER INC-2012049152

PATIENT

DRUGS (1)
  1. DETROL LA [Suspect]
     Dosage: UNK

REACTIONS (2)
  - MEMORY IMPAIRMENT [None]
  - CONFUSIONAL STATE [None]
